FAERS Safety Report 13757213 (Version 1)
Quarter: 2017Q3

REPORT INFORMATION
  Report Type: Spontaneous
  Country: US (occurrence: US)
  Receive Date: 20170714
  Receipt Date: 20170714
  Transmission Date: 20171127
  Serious: No
  Sender: FDA-Public Use
  Company Number: None

PATIENT
  Age: 42 Year
  Sex: Male
  Weight: 89.55 kg

DRUGS (24)
  1. PROTONIX [Concomitant]
     Active Substance: PANTOPRAZOLE SODIUM
  2. VITAMIN B-12 (COBALAMIN) [Concomitant]
  3. L-LYSINE [Concomitant]
     Active Substance: LYSINE
  4. DYMISTA [Concomitant]
     Active Substance: AZELASTINE HYDROCHLORIDE\FLUTICASONE PROPIONATE
  5. MINIVELLE [Concomitant]
     Active Substance: ESTRADIOL
  6. ZOMIG [Concomitant]
     Active Substance: ZOLMITRIPTAN
  7. JUICE PLUS GARDEN BLEND [Concomitant]
  8. BID-SUPPLEMENT [Concomitant]
  9. TRINTELLIX [Suspect]
     Active Substance: VORTIOXETINE HYDROBROMIDE
     Indication: DEPRESSION
     Dosage: OTHER STRENGTH:MG;QUANTITY:1 TABLET(S); AT BEDTIME?
     Route: 048
     Dates: start: 20170511
  10. ACYCLOVIR. [Concomitant]
     Active Substance: ACYCLOVIR
  11. BREO ELLIPTA [Concomitant]
     Active Substance: FLUTICASONE FUROATE\VILANTEROL TRIFENATATE
  12. PROBIOTIC [Concomitant]
     Active Substance: PROBIOTICS NOS
  13. VITAMIN D3 (CHOLECALCIFEROL) [Concomitant]
  14. CALCIUM CITRATE [Concomitant]
     Active Substance: CALCIUM CITRATE
  15. GABAPENTIN. [Concomitant]
     Active Substance: GABAPENTIN
  16. HYDROCODONE/APAP ELIXIR [Concomitant]
  17. PROAIR HFA [Concomitant]
     Active Substance: ALBUTEROL SULFATE
  18. VITAMIN B1 (THIAMIN) [Concomitant]
  19. MVI [Concomitant]
     Active Substance: VITAMINS
  20. JUICE PLUS ORCHARD BLEND [Concomitant]
  21. CYMBALTA [Concomitant]
     Active Substance: DULOXETINE HYDROCHLORIDE
  22. ZOFRAN ODT [Concomitant]
     Active Substance: ONDANSETRON HYDROCHLORIDE
  23. TRAMADOL. [Concomitant]
     Active Substance: TRAMADOL
  24. COLACE [Concomitant]
     Active Substance: DOCUSATE SODIUM

REACTIONS (1)
  - Contusion [None]

NARRATIVE: CASE EVENT DATE: 20170705
